FAERS Safety Report 4855674-8 (Version None)
Quarter: 2005Q4

REPORT INFORMATION
  Report Type: 
  Country: None (occurrence: None)
  Receive Date: 20051216
  Receipt Date: 20050927
  Transmission Date: 20060501
  Serious: Yes (Other)
  Sender: FDA-Public Use
  Company Number: PHEH2005US10776

PATIENT
  Age: 74 Year
  Sex: Female

DRUGS (2)
  1. AREDIA [Suspect]
     Indication: BREAST CANCER METASTATIC
     Dosage: 90 MG EVERY 3 TO FOUR WEEKS
     Route: 042
     Dates: start: 20000101, end: 20021001
  2. ZOMETA [Suspect]
     Indication: BREAST CANCER METASTATIC
     Dosage: 4 MG, QMO
     Route: 042
     Dates: start: 20021101, end: 20031101

REACTIONS (17)
  - ACTINOMYCOSIS [None]
  - BONE DEBRIDEMENT [None]
  - BONE DISORDER [None]
  - BONE FISTULA [None]
  - BONE LESION [None]
  - GINGIVAL SWELLING [None]
  - GINGIVITIS [None]
  - IMPAIRED HEALING [None]
  - MAXILLARY ANTRUM OPERATION [None]
  - OSTECTOMY [None]
  - OSTEOMYELITIS [None]
  - OSTEONECROSIS [None]
  - PERIODONTAL DISEASE [None]
  - PRIMARY SEQUESTRUM [None]
  - SINUS DISORDER [None]
  - TOOTH DISORDER [None]
  - TOOTH EXTRACTION [None]
